FAERS Safety Report 19438735 (Version 1)
Quarter: 2021Q2

REPORT INFORMATION
  Report Type: Spontaneous
  Country: FR (occurrence: FR)
  Receive Date: 20210618
  Receipt Date: 20210618
  Transmission Date: 20210717
  Serious: Yes (Hospitalization)
  Sender: FDA-Public Use
  Company Number: FR-BAUSCH-BL-2021-020347

PATIENT
  Age: 63 Year
  Sex: Female

DRUGS (2)
  1. ACICLOVIR [Suspect]
     Active Substance: ACYCLOVIR
     Indication: GENITAL HERPES
     Route: 048
     Dates: start: 20210503, end: 20210507
  2. MODERNA COVID?19 VACCINE [Suspect]
     Active Substance: CX-024414
     Indication: COVID-19 IMMUNISATION
     Dosage: 1 DOSAGE FORM IN TOTAL
     Route: 030
     Dates: start: 20210501, end: 20210501

REACTIONS (1)
  - Vascular purpura [Recovered/Resolved]

NARRATIVE: CASE EVENT DATE: 20210507
